FAERS Safety Report 7640839-2 (Version None)
Quarter: 2011Q3

REPORT INFORMATION
  Report Type: 
  Country: None (occurrence: None)
  Receive Date: 20110721
  Receipt Date: 20110713
  Transmission Date: 20111222
  Serious: Yes (Disabling)
  Sender: FDA-Public Use
  Company Number: 2011SP032429

PATIENT
  Age: 45 Year
  Sex: Female

DRUGS (1)
  1. CELESTONE [Suspect]
     Indication: PRODUCT USED FOR UNKNOWN INDICATION
     Dosage: 1 ML;ONCE; IA
     Route: 014
     Dates: start: 20110603, end: 20110603

REACTIONS (4)
  - CONDITION AGGRAVATED [None]
  - PAIN [None]
  - JOINT RANGE OF MOTION DECREASED [None]
  - INJECTED LIMB MOBILITY DECREASED [None]
